FAERS Safety Report 8318271-8 (Version None)
Quarter: 2012Q2

REPORT INFORMATION
  Report Type: 
  Country: None (occurrence: None)
  Receive Date: 20120427
  Receipt Date: 20120426
  Transmission Date: 20120825
  Serious: Yes (Hospitalization)
  Sender: FDA-Public Use
  Company Number: IT-ROCHE-1063288

PATIENT
  Sex: Female

DRUGS (3)
  1. CLONAZEPAM [Suspect]
     Indication: INTENTIONAL OVERDOSE
     Route: 048
     Dates: start: 20120411
  2. SEROQUEL [Suspect]
     Indication: INTENTIONAL OVERDOSE
     Route: 048
     Dates: start: 20120411
  3. COUMADIN [Concomitant]
     Route: 048

REACTIONS (4)
  - PUPILS UNEQUAL [None]
  - HEAD INJURY [None]
  - COMA [None]
  - SYNCOPE [None]
